FAERS Safety Report 25605939 (Version 1)
Quarter: 2025Q3

REPORT INFORMATION
  Report Type: Spontaneous
  Country: US (occurrence: None)
  Receive Date: 20250724
  Receipt Date: 20250724
  Transmission Date: 20251020
  Serious: Yes (Other)
  Sender: FDA-CTU
  Company Number: None

PATIENT
  Age: 6 Year
  Sex: Male

DRUGS (1)
  1. GUANFACINE [Suspect]
     Active Substance: GUANFACINE
     Dosage: FREQUENCY : DAILY;?
     Route: 048

REACTIONS (8)
  - Product odour abnormal [None]
  - Manufacturing materials issue [None]
  - Lethargy [None]
  - Hypophagia [None]
  - Somnolence [None]
  - Overdose [None]
  - Product preparation error [None]
  - Product dispensing error [None]

NARRATIVE: CASE EVENT DATE: 20250718
